FAERS Safety Report 11623637 (Version 1)
Quarter: 2015Q4

REPORT INFORMATION
  Report Type: Spontaneous
  Country: US (occurrence: US)
  Receive Date: 20151013
  Receipt Date: 20151013
  Transmission Date: 20160304
  Serious: No
  Sender: FDA-Public Use
  Company Number: US-JNJFOC-20150410325

PATIENT
  Sex: Female

DRUGS (2)
  1. TYLENOL CHILD CHEWABLE [Suspect]
     Active Substance: ACETAMINOPHEN
     Route: 065
  2. TYLENOL CHILD CHEWABLE [Suspect]
     Active Substance: ACETAMINOPHEN
     Indication: ANALGESIC THERAPY
     Route: 065

REACTIONS (2)
  - Wrong patient received medication [Unknown]
  - Dysgeusia [Unknown]
